FAERS Safety Report 8927229 (Version 1)
Quarter: 2012Q4

REPORT INFORMATION
  Report Type: 
  Country: CN (occurrence: CN)
  Receive Date: 20121127
  Receipt Date: 20121127
  Transmission Date: 20130627
  Serious: No
  Sender: FDA-Public Use
  Company Number: CN-JNJFOC-20121108214

PATIENT
  Age: 9 None
  Sex: Female

DRUGS (3)
  1. DUROGESIC D-TRANS [Suspect]
     Indication: TUMOUR PAIN
     Route: 062
     Dates: start: 20121110
  2. DUROGESIC D-TRANS [Suspect]
     Indication: TUMOUR PAIN
     Route: 062
  3. DUROGESIC D-TRANS [Suspect]
     Indication: TUMOUR PAIN
     Route: 062
     Dates: start: 201210

REACTIONS (3)
  - Nausea [Not Recovered/Not Resolved]
  - Vomiting [Not Recovered/Not Resolved]
  - Treatment noncompliance [Unknown]
